FAERS Safety Report 7948416-0 (Version None)
Quarter: 2011Q4

REPORT INFORMATION
  Report Type: 
  Country: None (occurrence: None)
  Receive Date: 20111130
  Receipt Date: 20111122
  Transmission Date: 20120403
  Serious: Yes (Other)
  Sender: FDA-Public Use
  Company Number: US-CELGENEUS-163-21880-11101083

PATIENT
  Sex: Male
  Weight: 94.886 kg

DRUGS (7)
  1. COUMADIN [Concomitant]
     Dosage: 10MG TWICE A WEEK 7.5 MG 5X WEEK
     Route: 065
  2. HYDROXYUREA [Concomitant]
     Dosage: 3000 MILLIGRAM
     Route: 065
  3. REVLIMID [Suspect]
     Dosage: 10 MILLIGRAM
     Route: 048
     Dates: start: 20101001
  4. FLU VACCINE [Suspect]
     Indication: PROPHYLAXIS
     Route: 065
  5. PROTONIX [Concomitant]
     Dosage: 40 MILLIGRAM
     Route: 065
  6. REVLIMID [Suspect]
     Indication: REFRACTORY ANAEMIA WITH RINGED SIDEROBLASTS
  7. OXYCODONE HCL [Concomitant]
     Indication: NERVE COMPRESSION
     Route: 065

REACTIONS (2)
  - TRANSIENT ISCHAEMIC ATTACK [None]
  - PLATELET COUNT INCREASED [None]
